FAERS Safety Report 6615998-0 (Version None)
Quarter: 2010Q1

REPORT INFORMATION
  Report Type: 
  Country: None (occurrence: None)
  Receive Date: 20100305
  Receipt Date: 20100301
  Transmission Date: 20100710
  Serious: Yes (Hospitalization)
  Sender: FDA-Public Use
  Company Number: A0848413A

PATIENT
  Sex: Male

DRUGS (7)
  1. ADVAIR DISKUS 100/50 [Suspect]
     Indication: DRUG USE FOR UNKNOWN INDICATION
     Route: 055
  2. SPIRIVA [Suspect]
     Indication: CHRONIC OBSTRUCTIVE PULMONARY DISEASE
     Dosage: 18MCG PER DAY
     Route: 065
     Dates: start: 20080201
  3. COMBIVENT [Suspect]
     Indication: DRUG USE FOR UNKNOWN INDICATION
     Route: 055
  4. SYMBICORT [Concomitant]
  5. DILTIAZEM HCL [Concomitant]
     Dosage: 180MG PER DAY
  6. FINASTERIDE [Concomitant]
     Dosage: 5MG PER DAY
  7. XOPENEX [Concomitant]
     Route: 055

REACTIONS (3)
  - BLOOD CREATINE PHOSPHOKINASE INCREASED [None]
  - HEART RATE INCREASED [None]
  - POLYMYOSITIS [None]
